FAERS Safety Report 5642174-0 (Version None)
Quarter: 2008Q1

REPORT INFORMATION
  Report Type: 
  Country: None (occurrence: None)
  Receive Date: 20080225
  Receipt Date: 20080215
  Transmission Date: 20080703
  Serious: Yes (Hospitalization)
  Sender: FDA-Public Use
  Company Number: 08H-167-0313892-00

PATIENT
  Age: 72 Year
  Sex: Male

DRUGS (12)
  1. ONDANSETRON [Suspect]
     Indication: DRUG USE FOR UNKNOWN INDICATION
  2. ACYCLOVIR [Suspect]
     Indication: CHEMOTHERAPY
  3. CIPROFLOXACIN [Suspect]
     Indication: CHEMOTHERAPY
     Dates: start: 20070622, end: 20071116
  4. COTRIMOXAZOLE (BACTRIM /00086101/) [Suspect]
     Indication: DRUG USE FOR UNKNOWN INDICATION
  5. FLUCONAZOLE [Suspect]
     Indication: CHEMOTHERAPY
     Dates: start: 20070622, end: 20071116
  6. VINCRISTINE [Suspect]
     Indication: CHEMOTHERAPY
     Dates: start: 20070622, end: 20071116
  7. ALENDRONATE (ALENDRONATE SODIUM) [Suspect]
     Indication: OSTEOPOROSIS
     Dates: start: 20071201
  8. ALLOPURINOL [Suspect]
     Indication: DRUG USE FOR UNKNOWN INDICATION
  9. LANSOPRAZOLE [Suspect]
     Indication: DRUG USE FOR UNKNOWN INDICATION
  10. PREDNISOLONE [Suspect]
     Indication: CHEMOTHERAPY
     Dates: start: 20070622, end: 20071116
  11. RITUXIMAB (RITUXIMAB) [Suspect]
     Indication: CHEMOTHERAPY
     Dates: start: 20070622, end: 20071116
  12. CYCLOPHOSPHAMIDE [Suspect]
     Indication: CHEMOTHERAPY

REACTIONS (1)
  - TOXIC SKIN ERUPTION [None]
